FAERS Safety Report 7191685-8 (Version None)
Quarter: 2010Q4

REPORT INFORMATION
  Report Type: 
  Country: None (occurrence: None)
  Receive Date: 20101223
  Receipt Date: 20101208
  Transmission Date: 20110411
  Serious: No
  Sender: FDA-Public Use
  Company Number: US-BAYER-2010-005551

PATIENT
  Sex: Female
  Weight: 65.306 kg

DRUGS (7)
  1. ULTRAVIST 150 [Suspect]
     Dosage: 90 ML, ONCE
     Route: 042
     Dates: start: 20101208, end: 20101208
  2. ULTRAVIST 150 [Suspect]
     Indication: ANGIOGRAM
  3. ULTRAVIST 150 [Suspect]
     Indication: CHEST PAIN
  4. ULTRAVIST 150 [Suspect]
  5. ULTRAVIST 150 [Suspect]
     Indication: PULMONARY EMBOLISM
  6. METOPROLOL [Concomitant]
     Dosage: UNK
  7. LISINOPRIL [Concomitant]
     Dosage: UNK

REACTIONS (3)
  - CHILLS [None]
  - NAUSEA [None]
  - VOMITING [None]
